FAERS Safety Report 15827624 (Version 1)
Quarter: 2019Q1

REPORT INFORMATION
  Report Type: Report from Study
  Country: US (occurrence: US)
  Receive Date: 20190115
  Receipt Date: 20190115
  Transmission Date: 20190417
  Serious: Yes (Other)
  Sender: FDA-Public Use
  Company Number: PHEH2019US001618

PATIENT
  Sex: Female

DRUGS (1)
  1. GLEEVEC [Suspect]
     Active Substance: IMATINIB MESYLATE
     Indication: SMALL INTESTINE CARCINOMA
     Dosage: UNK
     Route: 065

REACTIONS (5)
  - Lung neoplasm [Unknown]
  - Hepatic neoplasm [Unknown]
  - Second primary malignancy [Unknown]
  - Product use in unapproved indication [Unknown]
  - Gastric cancer [Unknown]
